FAERS Safety Report 20568010 (Version 1)
Quarter: 2022Q1

REPORT INFORMATION
  Report Type: Spontaneous
  Country: US (occurrence: US)
  Receive Date: 20220308
  Receipt Date: 20220308
  Transmission Date: 20220423
  Serious: Yes (Other)
  Sender: FDA-Public Use
  Company Number: US-TAKEDA-2022TUS013969

PATIENT
  Age: 11 Year

DRUGS (3)
  1. ADYNOVATE [Suspect]
     Active Substance: ANTIHEMOPHILIC FACTOR, HUMAN RECOMBINANT
     Indication: Factor VIII deficiency
     Dosage: 60 INTERNATIONAL UNIT/KILOGRAM, QD
     Route: 065
     Dates: start: 2017
  2. ADYNOVATE [Suspect]
     Active Substance: ANTIHEMOPHILIC FACTOR, HUMAN RECOMBINANT
     Indication: Factor VIII deficiency
     Dosage: 60 INTERNATIONAL UNIT/KILOGRAM, QD
     Route: 065
     Dates: start: 2017
  3. ADYNOVATE [Suspect]
     Active Substance: ANTIHEMOPHILIC FACTOR, HUMAN RECOMBINANT
     Indication: Factor VIII deficiency
     Dosage: 60 INTERNATIONAL UNIT/KILOGRAM, QD
     Route: 065
     Dates: start: 2017

REACTIONS (3)
  - Haemorrhage [Unknown]
  - Drug half-life reduced [Unknown]
  - Pain [Unknown]
